FAERS Safety Report 8797674 (Version 1)
Quarter: 2012Q4

REPORT INFORMATION
  Report Type: Spontaneous
  Country: US (occurrence: None)
  Receive Date: 20120914
  Receipt Date: 20120914
  Transmission Date: 20130627
  Serious: Yes (Other)
  Sender: FDA-Public Use
  Company Number: None

PATIENT
  Age: 16 Year
  Sex: Female

DRUGS (1)
  1. ENBREL [Suspect]
     Indication: JUVENILE RHEUMATOID ARTHRITIS
     Route: 058
     Dates: start: 20120713

REACTIONS (3)
  - Depression [None]
  - Vomiting [None]
  - Mood altered [None]
